FAERS Safety Report 25890355 (Version 1)
Quarter: 2025Q4

REPORT INFORMATION
  Report Type: Spontaneous
  Country: GB (occurrence: GB)
  Receive Date: 20251007
  Receipt Date: 20251007
  Transmission Date: 20260118
  Serious: Yes (Other)
  Sender: MYLAN
  Company Number: GB-MHRA-TPP44646433C9764295YC1759222550671

PATIENT
  Age: 67 Year
  Sex: Male
  Weight: 98 kg

DRUGS (48)
  1. ATORVASTATIN [Suspect]
     Active Substance: ATORVASTATIN
     Indication: Product used for unknown indication
     Dosage: 20 MILLIGRAM, PM (ONE TO BE TAKEN AT NIGHT TO LOWER CHOLESTEROL)
     Dates: start: 20250624
  2. ATORVASTATIN [Suspect]
     Active Substance: ATORVASTATIN
     Dosage: 20 MILLIGRAM, PM (ONE TO BE TAKEN AT NIGHT TO LOWER CHOLESTEROL)
     Route: 065
     Dates: start: 20250624
  3. ATORVASTATIN [Suspect]
     Active Substance: ATORVASTATIN
     Dosage: 20 MILLIGRAM, PM (ONE TO BE TAKEN AT NIGHT TO LOWER CHOLESTEROL)
     Route: 065
     Dates: start: 20250624
  4. ATORVASTATIN [Suspect]
     Active Substance: ATORVASTATIN
     Dosage: 20 MILLIGRAM, PM (ONE TO BE TAKEN AT NIGHT TO LOWER CHOLESTEROL)
     Dates: start: 20250624
  5. SPIRIVA [Concomitant]
     Active Substance: TIOTROPIUM BROMIDE MONOHYDRATE
     Indication: Ill-defined disorder
     Dosage: 2 DOSAGE FORM, QD (TAKE TWO PUFFS ONCE DAILY (REPLACE INHALER DEVI...)
     Dates: start: 20250721
  6. SPIRIVA [Concomitant]
     Active Substance: TIOTROPIUM BROMIDE MONOHYDRATE
     Dosage: 2 DOSAGE FORM, QD (TAKE TWO PUFFS ONCE DAILY (REPLACE INHALER DEVI...)
     Route: 065
     Dates: start: 20250721
  7. SPIRIVA [Concomitant]
     Active Substance: TIOTROPIUM BROMIDE MONOHYDRATE
     Dosage: 2 DOSAGE FORM, QD (TAKE TWO PUFFS ONCE DAILY (REPLACE INHALER DEVI...)
     Route: 065
     Dates: start: 20250721
  8. SPIRIVA [Concomitant]
     Active Substance: TIOTROPIUM BROMIDE MONOHYDRATE
     Dosage: 2 DOSAGE FORM, QD (TAKE TWO PUFFS ONCE DAILY (REPLACE INHALER DEVI...)
     Dates: start: 20250721
  9. COCODAMOL [Concomitant]
     Active Substance: ACETAMINOPHEN\CODEINE PHOSPHATE
     Indication: Ill-defined disorder
     Dosage: 1 DOSAGE FORM (ONE TO BE TAKEN FOUR TIMES A DAY WHEN REQUIRED ...)
  10. COCODAMOL [Concomitant]
     Active Substance: ACETAMINOPHEN\CODEINE PHOSPHATE
     Dosage: 1 DOSAGE FORM (ONE TO BE TAKEN FOUR TIMES A DAY WHEN REQUIRED ...)
     Route: 065
  11. COCODAMOL [Concomitant]
     Active Substance: ACETAMINOPHEN\CODEINE PHOSPHATE
     Dosage: 1 DOSAGE FORM (ONE TO BE TAKEN FOUR TIMES A DAY WHEN REQUIRED ...)
     Route: 065
  12. COCODAMOL [Concomitant]
     Active Substance: ACETAMINOPHEN\CODEINE PHOSPHATE
     Dosage: 1 DOSAGE FORM (ONE TO BE TAKEN FOUR TIMES A DAY WHEN REQUIRED ...)
  13. DOXAZOSIN [Concomitant]
     Active Substance: DOXAZOSIN MESYLATE
     Indication: Ill-defined disorder
     Dosage: 1 DOSAGE FORM, QD (TAKE ONE DAILY, INCREASING TO TWO TABLETS DAILY...)
     Dates: start: 20250530
  14. DOXAZOSIN [Concomitant]
     Active Substance: DOXAZOSIN MESYLATE
     Dosage: 1 DOSAGE FORM, QD (TAKE ONE DAILY, INCREASING TO TWO TABLETS DAILY...)
     Route: 065
     Dates: start: 20250530
  15. DOXAZOSIN [Concomitant]
     Active Substance: DOXAZOSIN MESYLATE
     Dosage: 1 DOSAGE FORM, QD (TAKE ONE DAILY, INCREASING TO TWO TABLETS DAILY...)
     Route: 065
     Dates: start: 20250530
  16. DOXAZOSIN [Concomitant]
     Active Substance: DOXAZOSIN MESYLATE
     Dosage: 1 DOSAGE FORM, QD (TAKE ONE DAILY, INCREASING TO TWO TABLETS DAILY...)
     Dates: start: 20250530
  17. MINERAL OIL\PARAFFIN [Concomitant]
     Active Substance: MINERAL OIL\PARAFFIN
     Indication: Ill-defined disorder
     Dosage: UNK (USE AS DIRECTED AS A SOAP SUBSTITUTE)
  18. MINERAL OIL\PARAFFIN [Concomitant]
     Active Substance: MINERAL OIL\PARAFFIN
     Dosage: UNK (USE AS DIRECTED AS A SOAP SUBSTITUTE)
     Route: 065
  19. MINERAL OIL\PARAFFIN [Concomitant]
     Active Substance: MINERAL OIL\PARAFFIN
     Dosage: UNK (USE AS DIRECTED AS A SOAP SUBSTITUTE)
     Route: 065
  20. MINERAL OIL\PARAFFIN [Concomitant]
     Active Substance: MINERAL OIL\PARAFFIN
     Dosage: UNK (USE AS DIRECTED AS A SOAP SUBSTITUTE)
  21. EUMOVATE [Concomitant]
     Active Substance: CLOBETASONE BUTYRATE
     Indication: Ill-defined disorder
     Dosage: UNK, QD (APPLY 1-2 TIMES/DAY ON YOUR FACE, NECK AND FLEX...)
     Dates: start: 20250530
  22. EUMOVATE [Concomitant]
     Active Substance: CLOBETASONE BUTYRATE
     Dosage: UNK, QD (APPLY 1-2 TIMES/DAY ON YOUR FACE, NECK AND FLEX...)
     Route: 061
     Dates: start: 20250530
  23. EUMOVATE [Concomitant]
     Active Substance: CLOBETASONE BUTYRATE
     Dosage: UNK, QD (APPLY 1-2 TIMES/DAY ON YOUR FACE, NECK AND FLEX...)
     Route: 061
     Dates: start: 20250530
  24. EUMOVATE [Concomitant]
     Active Substance: CLOBETASONE BUTYRATE
     Dosage: UNK, QD (APPLY 1-2 TIMES/DAY ON YOUR FACE, NECK AND FLEX...)
     Dates: start: 20250530
  25. INDAPAMIDE [Concomitant]
     Active Substance: INDAPAMIDE
     Indication: Ill-defined disorder
     Dosage: 1 DOSAGE FORM, AM (ONE TABLET EACH MORNING, TO REDUCE BLOOD PRESSURE)
     Dates: start: 20250530
  26. INDAPAMIDE [Concomitant]
     Active Substance: INDAPAMIDE
     Dosage: 1 DOSAGE FORM, AM (ONE TABLET EACH MORNING, TO REDUCE BLOOD PRESSURE)
     Route: 065
     Dates: start: 20250530
  27. INDAPAMIDE [Concomitant]
     Active Substance: INDAPAMIDE
     Dosage: 1 DOSAGE FORM, AM (ONE TABLET EACH MORNING, TO REDUCE BLOOD PRESSURE)
     Route: 065
     Dates: start: 20250530
  28. INDAPAMIDE [Concomitant]
     Active Substance: INDAPAMIDE
     Dosage: 1 DOSAGE FORM, AM (ONE TABLET EACH MORNING, TO REDUCE BLOOD PRESSURE)
     Dates: start: 20250530
  29. MOMETASONE [Concomitant]
     Active Substance: MOMETASONE
     Indication: Ill-defined disorder
     Dosage: UNK, QD (APPLY 1-2 TIMES/DAY ON YOUR TRUNK)
     Dates: start: 20250530
  30. MOMETASONE [Concomitant]
     Active Substance: MOMETASONE
     Dosage: UNK, QD (APPLY 1-2 TIMES/DAY ON YOUR TRUNK)
     Route: 061
     Dates: start: 20250530
  31. MOMETASONE [Concomitant]
     Active Substance: MOMETASONE
     Dosage: UNK, QD (APPLY 1-2 TIMES/DAY ON YOUR TRUNK)
     Route: 061
     Dates: start: 20250530
  32. MOMETASONE [Concomitant]
     Active Substance: MOMETASONE
     Dosage: UNK, QD (APPLY 1-2 TIMES/DAY ON YOUR TRUNK)
     Dates: start: 20250530
  33. MONTELUKAST [Concomitant]
     Active Substance: MONTELUKAST
     Indication: Ill-defined disorder
     Dosage: 1 DOSAGE FORM, PM (ONE TABLET AT NIGHT TO PREVENT ASTHMA,)
     Dates: start: 20250530
  34. MONTELUKAST [Concomitant]
     Active Substance: MONTELUKAST
     Dosage: 1 DOSAGE FORM, PM (ONE TABLET AT NIGHT TO PREVENT ASTHMA,)
     Route: 065
     Dates: start: 20250530
  35. MONTELUKAST [Concomitant]
     Active Substance: MONTELUKAST
     Dosage: 1 DOSAGE FORM, PM (ONE TABLET AT NIGHT TO PREVENT ASTHMA,)
     Route: 065
     Dates: start: 20250530
  36. MONTELUKAST [Concomitant]
     Active Substance: MONTELUKAST
     Dosage: 1 DOSAGE FORM, PM (ONE TABLET AT NIGHT TO PREVENT ASTHMA,)
     Dates: start: 20250530
  37. OMEPRAZOLE [Concomitant]
     Active Substance: OMEPRAZOLE
     Indication: Ill-defined disorder
     Dosage: 1 DOSAGE FORM, QD (ONE TO BE TAKEN EACH DAY)
     Dates: start: 20250530
  38. OMEPRAZOLE [Concomitant]
     Active Substance: OMEPRAZOLE
     Dosage: 1 DOSAGE FORM, QD (ONE TO BE TAKEN EACH DAY)
     Route: 065
     Dates: start: 20250530
  39. OMEPRAZOLE [Concomitant]
     Active Substance: OMEPRAZOLE
     Dosage: 1 DOSAGE FORM, QD (ONE TO BE TAKEN EACH DAY)
     Route: 065
     Dates: start: 20250530
  40. OMEPRAZOLE [Concomitant]
     Active Substance: OMEPRAZOLE
     Dosage: 1 DOSAGE FORM, QD (ONE TO BE TAKEN EACH DAY)
     Dates: start: 20250530
  41. RAMIPRIL [Concomitant]
     Active Substance: RAMIPRIL
     Indication: Ill-defined disorder
     Dosage: 1 DOSAGE FORM, QD (ONE CAPSULE ONCE DAILY)
     Dates: start: 20250530
  42. RAMIPRIL [Concomitant]
     Active Substance: RAMIPRIL
     Dosage: 1 DOSAGE FORM, QD (ONE CAPSULE ONCE DAILY)
     Route: 065
     Dates: start: 20250530
  43. RAMIPRIL [Concomitant]
     Active Substance: RAMIPRIL
     Dosage: 1 DOSAGE FORM, QD (ONE CAPSULE ONCE DAILY)
     Route: 065
     Dates: start: 20250530
  44. RAMIPRIL [Concomitant]
     Active Substance: RAMIPRIL
     Dosage: 1 DOSAGE FORM, QD (ONE CAPSULE ONCE DAILY)
     Dates: start: 20250530
  45. SYMBICORT [Concomitant]
     Active Substance: BUDESONIDE\FORMOTEROL FUMARATE DIHYDRATE
     Indication: Ill-defined disorder
     Dosage: 1 DOSAGE FORM (1 PUFF BD PRN)
  46. SYMBICORT [Concomitant]
     Active Substance: BUDESONIDE\FORMOTEROL FUMARATE DIHYDRATE
     Dosage: 1 DOSAGE FORM (1 PUFF BD PRN)
     Route: 065
  47. SYMBICORT [Concomitant]
     Active Substance: BUDESONIDE\FORMOTEROL FUMARATE DIHYDRATE
     Dosage: 1 DOSAGE FORM (1 PUFF BD PRN)
     Route: 065
  48. SYMBICORT [Concomitant]
     Active Substance: BUDESONIDE\FORMOTEROL FUMARATE DIHYDRATE
     Dosage: 1 DOSAGE FORM (1 PUFF BD PRN)

REACTIONS (4)
  - Asthma [Recovering/Resolving]
  - Myalgia [Recovered/Resolved]
  - Arthralgia [Recovered/Resolved]
  - Condition aggravated [Unknown]
